FAERS Safety Report 20964474 (Version 2)
Quarter: 2022Q2

REPORT INFORMATION
  Report Type: Spontaneous
  Country: US (occurrence: US)
  Receive Date: 20220615
  Receipt Date: 20220629
  Transmission Date: 20220721
  Serious: Yes (Hospitalization)
  Sender: FDA-Public Use
  Company Number: US-Global Blood Therapeutics Inc-US-GBT-22-03675

PATIENT
  Age: 27 Year
  Sex: Female

DRUGS (2)
  1. OXBRYTA [Suspect]
     Active Substance: VOXELOTOR
     Indication: Product used for unknown indication
     Dates: end: 20220519
  2. OXBRYTA [Suspect]
     Active Substance: VOXELOTOR
     Dates: start: 20220606

REACTIONS (6)
  - Sickle cell anaemia with crisis [Unknown]
  - Limb operation [Unknown]
  - Sickle cell anaemia with crisis [Not Recovered/Not Resolved]
  - Central venous catheterisation [Unknown]
  - Therapy cessation [Unknown]
  - Intentional product misuse [Unknown]

NARRATIVE: CASE EVENT DATE: 20220519
